FAERS Safety Report 9097140 (Version 4)
Quarter: 2013Q1

REPORT INFORMATION
  Report Type: Report from Study
  Country: BR (occurrence: BR)
  Receive Date: 20130212
  Receipt Date: 20130319
  Transmission Date: 20140127
  Serious: Yes (Death, Hospitalization)
  Sender: FDA-Public Use
  Company Number: BR-ROCHE-1036357

PATIENT
  Age: 57 Year
  Sex: Female
  Weight: 93.4 kg

DRUGS (7)
  1. ENALAPRIL [Concomitant]
     Route: 065
     Dates: start: 20100415, end: 20130129
  2. ATENOLOL [Concomitant]
     Route: 065
     Dates: start: 20100415, end: 20130129
  3. AMLODIPINE [Concomitant]
     Route: 065
     Dates: start: 20100415, end: 20130129
  4. HYDROCHLOROTHIAZIDE [Concomitant]
     Route: 065
     Dates: start: 20100415, end: 20130129
  5. FOLIC ACID [Concomitant]
     Route: 065
     Dates: start: 20110427
  6. TOCILIZUMAB [Suspect]
     Indication: RHEUMATOID ARTHRITIS
     Route: 042
     Dates: start: 20110427, end: 20130124
  7. METHOTREXATE [Suspect]
     Indication: RHEUMATOID ARTHRITIS
     Route: 048
     Dates: start: 20110427, end: 20130124

REACTIONS (2)
  - Endometrial cancer [Fatal]
  - Fall [Unknown]
